FAERS Safety Report 17562484 (Version 3)
Quarter: 2021Q1

REPORT INFORMATION
  Report Type: Report from Study
  Country: US (occurrence: US)
  Receive Date: 20200319
  Receipt Date: 20210212
  Transmission Date: 20210419
  Serious: Yes (Life-Threatening, Hospitalization, Other)
  Sender: FDA-Public Use
  Company Number: NVSC2020US073578

PATIENT
  Age: 13 Year
  Sex: Female
  Weight: 43.2 kg

DRUGS (5)
  1. VANCOMYCIN [Concomitant]
     Active Substance: VANCOMYCIN
     Indication: NEUTROPENIA
     Dosage: 15 MG/KG, Q8H
     Route: 065
  2. PIPERACILLIN. [Concomitant]
     Active Substance: PIPERACILLIN SODIUM
     Indication: NEUTROPENIA
     Dosage: 3000 MG, Q6H
     Route: 065
  3. KYMRIAH [Suspect]
     Active Substance: TISAGENLECLEUCEL
     Indication: LYMPHOCYTIC LEUKAEMIA
     Dosage: UNK
     Route: 041
     Dates: start: 20180619
  4. CEFEPIME [Concomitant]
     Active Substance: CEFEPIME HYDROCHLORIDE
     Indication: NEUTROPENIA
     Dosage: 200 MG, Q8H
     Route: 065
  5. LEVETIRACETAM. [Concomitant]
     Active Substance: LEVETIRACETAM
     Indication: SEIZURE PROPHYLAXIS
     Dosage: 20 MG/KG, Q12H
     Route: 042

REACTIONS (24)
  - Liver function test increased [Recovered/Resolved]
  - White blood cell count decreased [Unknown]
  - Agitation [Recovered/Resolved]
  - Herpes virus infection [Unknown]
  - Speech disorder [Unknown]
  - Thrombocytopenia [Unknown]
  - Confusional state [Recovered/Resolved]
  - Stomatitis [Unknown]
  - Hypoxia [Recovered/Resolved]
  - Encephalopathy [Recovered/Resolved]
  - Hepatic function abnormal [Unknown]
  - Hypotension [Recovered/Resolved]
  - Lymphocyte count decreased [Unknown]
  - Cytokine release syndrome [Recovered/Resolved]
  - Pyrexia [Recovered/Resolved]
  - Pancreatitis [Unknown]
  - Irritability [Unknown]
  - Neutrophil count decreased [Recovered/Resolved]
  - Haemophagocytic lymphohistiocytosis [Unknown]
  - Chills [Unknown]
  - Cytopenia [Unknown]
  - Moaning [Unknown]
  - Neurotoxicity [Recovered/Resolved]
  - Tachycardia [Unknown]

NARRATIVE: CASE EVENT DATE: 20180619
